FAERS Safety Report 13076678 (Version 1)
Quarter: 2016Q4

REPORT INFORMATION
  Report Type: Spontaneous
  Country: US (occurrence: US)
  Receive Date: 20161230
  Receipt Date: 20161230
  Transmission Date: 20170207
  Serious: Yes (Hospitalization, Other)
  Sender: FDA-Public Use
  Company Number: US-TEVA-724180USA

PATIENT
  Age: 60 Year
  Sex: Female

DRUGS (5)
  1. VESICARE [Suspect]
     Active Substance: SOLIFENACIN SUCCINATE
     Indication: INCONTINENCE
     Dates: start: 2015, end: 2015
  2. DITROPAN [Suspect]
     Active Substance: OXYBUTYNIN CHLORIDE
     Indication: INCONTINENCE
     Route: 065
  3. OXYBUTYNIN [Suspect]
     Active Substance: OXYBUTYNIN
     Indication: INCONTINENCE
     Route: 065
  4. ENABLEX [Suspect]
     Active Substance: DARIFENACIN HYDROBROMIDE
     Indication: INCONTINENCE
  5. DITROPAN [Suspect]
     Active Substance: OXYBUTYNIN CHLORIDE
     Indication: HYPERTONIC BLADDER

REACTIONS (5)
  - Urosepsis [Recovered/Resolved]
  - Adverse reaction [Unknown]
  - Urinary tract infection [Recovered/Resolved]
  - Calculus urinary [Recovered/Resolved]
  - Drug ineffective [Unknown]

NARRATIVE: CASE EVENT DATE: 201601
